FAERS Safety Report 9262335 (Version 3)
Quarter: 2013Q3

REPORT INFORMATION
  Report Type: Spontaneous
  Country: US (occurrence: None)
  Receive Date: 20130424
  Receipt Date: 20130815
  Transmission Date: 20140515
  Serious: Yes (Hospitalization, Other)
  Sender: FDA-Public Use
  Company Number: ADR-2012-02255

PATIENT
  Sex: Female

DRUGS (1)
  1. BACLOFEN [Suspect]
     Indication: MUSCLE SPASTICITY

REACTIONS (21)
  - Convulsion [None]
  - Tremor [None]
  - Nuclear magnetic resonance imaging brain abnormal [None]
  - Drug withdrawal syndrome [None]
  - General physical health deterioration [None]
  - Urinary tract infection [None]
  - Pyrexia [None]
  - Incorrect dose administered [None]
  - Device failure [None]
  - Respiratory arrest [None]
  - Overdose [None]
  - Cognitive disorder [None]
  - Altered state of consciousness [None]
  - Urinary tract infection [None]
  - Delusion [None]
  - Disorientation [None]
  - Pyrexia [None]
  - Muscle contracture [None]
  - White blood cell count increased [None]
  - Nuclear magnetic resonance imaging brain abnormal [None]
  - No therapeutic response [None]
